FAERS Safety Report 10527858 (Version 2)
Quarter: 2014Q4

REPORT INFORMATION
  Report Type: Spontaneous
  Country: US (occurrence: US)
  Receive Date: 20141020
  Receipt Date: 20141113
  Transmission Date: 20150528
  Serious: No
  Sender: FDA-Public Use
  Company Number: US-PFIZER INC-2014284433

PATIENT
  Age: 89 Year
  Sex: Female
  Weight: 56.69 kg

DRUGS (2)
  1. XALATAN [Suspect]
     Active Substance: LATANOPROST
     Indication: EYE DISORDER
     Dosage: UNK, DAILY
     Dates: start: 2009
  2. DORZOLAMIDE [Concomitant]
     Active Substance: DORZOLAMIDE
     Indication: EYE DISORDER
     Dosage: UNK

REACTIONS (1)
  - Visual acuity reduced [Unknown]
